FAERS Safety Report 10868036 (Version 2)
Quarter: 2015Q2

REPORT INFORMATION
  Report Type: Spontaneous
  Country: CN (occurrence: CN)
  Receive Date: 20150225
  Receipt Date: 20150424
  Transmission Date: 20150821
  Serious: Yes (Other)
  Sender: FDA-Public Use
  Company Number: CN-JNJFOC-20150209255

PATIENT
  Age: 54 Year
  Sex: Male

DRUGS (4)
  1. DOXORUBICIN HYDROCHLORIDE. [Suspect]
     Active Substance: DOXORUBICIN HYDROCHLORIDE
     Indication: HAEMATOPOIETIC NEOPLASM
     Dosage: 1ST DAY
     Route: 042
  2. PREDNISONE. [Suspect]
     Active Substance: PREDNISONE
     Indication: HAEMATOPOIETIC NEOPLASM
     Dosage: 1ST - 5TH DAY
     Route: 048
  3. VINCRISTINE [Suspect]
     Active Substance: VINCRISTINE
     Indication: HAEMATOPOIETIC NEOPLASM
     Dosage: 1ST DAY
     Route: 042
  4. CYCLOPHOSPHAMIDE. [Suspect]
     Active Substance: CYCLOPHOSPHAMIDE
     Indication: HAEMATOPOIETIC NEOPLASM
     Dosage: 1ST DAY
     Route: 042

REACTIONS (12)
  - Sepsis [Unknown]
  - Septic shock [Unknown]
  - Cardiac failure [Unknown]
  - Respiratory acidosis [Unknown]
  - Hypochloraemia [Unknown]
  - Metabolic acidosis [Unknown]
  - Hyponatraemia [Unknown]
  - Hypokalaemia [Unknown]
  - Oropharyngeal pain [Unknown]
  - Bone marrow failure [Unknown]
  - Hypocalcaemia [Unknown]
  - Dysphonia [Unknown]

NARRATIVE: CASE EVENT DATE: 2013
